FAERS Safety Report 8529377-2 (Version None)
Quarter: 2012Q3

REPORT INFORMATION
  Report Type: 
  Country: None (occurrence: None)
  Receive Date: 20120723
  Receipt Date: 20120711
  Transmission Date: 20120928
  Serious: Yes (Life-Threatening)
  Sender: FDA-Public Use
  Company Number: DE-009507513-1207DEU004283

PATIENT

DRUGS (1)
  1. PUREGON [Suspect]
     Indication: OVULATION DISORDER
     Dosage: 25 IU, UNK
     Dates: start: 20101028

REACTIONS (1)
  - NON-HODGKIN'S LYMPHOMA [None]
